FAERS Safety Report 13073723 (Version 1)
Quarter: 2016Q4

REPORT INFORMATION
  Report Type: Report from Study
  Country: US (occurrence: US)
  Receive Date: 20161229
  Receipt Date: 20161229
  Transmission Date: 20170207
  Serious: Yes (Hospitalization)
  Sender: FDA-Public Use
  Company Number: US-MALLINCKRODT-T201606705

PATIENT
  Age: 33 Year
  Sex: Male

DRUGS (2)
  1. REPOSITORY CORTICOTROPIN INJECTION [Suspect]
     Active Substance: CORTICOTROPIN
     Indication: FOCAL SEGMENTAL GLOMERULOSCLEROSIS
     Dosage: 80 UNITS / 1 ML, 2 TIMES PER WEEK (MONDAY AND FRIDAY)
     Route: 058
     Dates: start: 20161114, end: 201612
  2. REPOSITORY CORTICOTROPIN INJECTION [Suspect]
     Active Substance: CORTICOTROPIN
     Indication: RENAL TRANSPLANT

REACTIONS (1)
  - Infection [Unknown]

NARRATIVE: CASE EVENT DATE: 20161214
